FAERS Safety Report 7345198-0 (Version None)
Quarter: 2011Q1

REPORT INFORMATION
  Report Type: 
  Country: None (occurrence: None)
  Receive Date: 20110310
  Receipt Date: 20110228
  Transmission Date: 20110831
  Serious: Yes (Death)
  Sender: FDA-Public Use
  Company Number: US-ACTELION-A-NJ2011-45733

PATIENT

DRUGS (4)
  1. TRACLEER [Suspect]
     Indication: PULMONARY ARTERIAL HYPERTENSION
     Dosage: 125 MG, BID
     Route: 048
     Dates: start: 20090226, end: 20110220
  2. RAPAMUNE [Suspect]
  3. CALCIUM CHANNEL BLOCKERS [Concomitant]
  4. PRAVACHOL [Suspect]

REACTIONS (2)
  - CARDIAC ARREST [None]
  - HEPATIC ENZYME INCREASED [None]
